FAERS Safety Report 5143376-2 (Version None)
Quarter: 2006Q4

REPORT INFORMATION
  Report Type: 
  Country: None (occurrence: None)
  Receive Date: 20061101
  Receipt Date: 20061101
  Transmission Date: 20070319
  Serious: Yes (Life-Threatening, Hospitalization)
  Sender: FDA-Public Use
  Company Number: None

PATIENT
  Age: 79 Year
  Sex: Male
  Weight: 89.2 kg

DRUGS (13)
  1. CETUXIMAB 400MG/ M2 BRISTOL-MYERS SQUIBB [Suspect]
     Indication: NEOPLASM MALIGNANT
     Dosage: 830 MG ONCE A DAY IV DRIP
     Route: 041
     Dates: start: 20060906, end: 20060906
  2. ACETAMINOPHEN [Concomitant]
  3. . [Concomitant]
  4. ATENOLOL [Concomitant]
  5. ATROPINE [Concomitant]
  6. BISACODYL SUPP [Concomitant]
  7. CAMPHOR/MENTHOL LOTION [Concomitant]
  8. CIMETIDINE [Concomitant]
  9. METHYLCELLULOSE 0.4% SOLN [Concomitant]
  10. MILK OF MAGNESIA SUSP [Concomitant]
  11. NITROGLYCERIN [Concomitant]
  12. OXYCODONE/ACETAMINOPHEN [Concomitant]
  13. SIMVASTATIN [Concomitant]

REACTIONS (9)
  - ANAPHYLACTIC REACTION [None]
  - BUNDLE BRANCH BLOCK RIGHT [None]
  - FEELING ABNORMAL [None]
  - HYPOTENSION [None]
  - INFUSION RELATED REACTION [None]
  - MALAISE [None]
  - NAUSEA [None]
  - OXYGEN SATURATION DECREASED [None]
  - SINUS TACHYCARDIA [None]
